FAERS Safety Report 17203212 (Version 1)
Quarter: 2019Q4

REPORT INFORMATION
  Report Type: Spontaneous
  Country: DE (occurrence: DE)
  Receive Date: 20191226
  Receipt Date: 20191226
  Transmission Date: 20200122
  Serious: Yes (Hospitalization)
  Sender: FDA-Public Use
  Company Number: DE-ALLERGAN-1952577US

PATIENT
  Sex: Female

DRUGS (4)
  1. OMEPRAZOL [Concomitant]
     Active Substance: OMEPRAZOLE
     Dosage: 20 MG, NK
  2. IBUPROFEN. [Suspect]
     Active Substance: IBUPROFEN
     Indication: PRODUCT USED FOR UNKNOWN INDICATION
     Dosage: NK MG, BEI BEDARF
  3. PYLERA [Suspect]
     Active Substance: BISMUTH SUBCITRATE POTASSIUM\METRONIDAZOLE\TETRACYCLINE HYDROCHLORIDE
     Indication: PRODUCT USED FOR UNKNOWN INDICATION
     Dosage: 140|125|125 MG, NK
  4. METAMIZOL [Concomitant]
     Active Substance: METAMIZOLE SODIUM
     Dosage: NK MG, BEI BEDARF

REACTIONS (4)
  - Product dispensing error [Unknown]
  - Abdominal pain [Unknown]
  - Abdominal pain upper [Unknown]
  - Nausea [Unknown]

NARRATIVE: CASE EVENT DATE: 20190726
